FAERS Safety Report 11643174 (Version 3)
Quarter: 2016Q1

REPORT INFORMATION
  Report Type: Spontaneous
  Country: US (occurrence: US)
  Receive Date: 20151020
  Receipt Date: 20160119
  Transmission Date: 20160525
  Serious: No
  Sender: FDA-Public Use
  Company Number: US-PFIZER INC-2015334519

PATIENT
  Age: 71 Year
  Sex: Female

DRUGS (2)
  1. IBRANCE [Suspect]
     Active Substance: PALBOCICLIB
     Indication: BREAST CANCER
     Dosage: 125 MG, 1X/DAY (FOR 21 DAYS)
     Dates: start: 20150303, end: 20150930
  2. ANASTROZOLE. [Concomitant]
     Active Substance: ANASTROZOLE
     Indication: BREAST CANCER
     Dosage: UNK
     Dates: start: 20150303, end: 20150930

REACTIONS (3)
  - Disease progression [Unknown]
  - Breast cancer [Unknown]
  - Product use issue [Unknown]

NARRATIVE: CASE EVENT DATE: 20150303
